FAERS Safety Report 7812498-7 (Version None)
Quarter: 2011Q4

REPORT INFORMATION
  Report Type: 
  Country: None (occurrence: None)
  Receive Date: 20111013
  Receipt Date: 20110929
  Transmission Date: 20120403
  Serious: Yes (Death, Other)
  Sender: FDA-Public Use
  Company Number: US-JNJFOC-20111005111

PATIENT
  Sex: Male

DRUGS (7)
  1. ACETAMINOPHEN [Suspect]
  2. MORPHINE [Suspect]
     Indication: PRODUCT USED FOR UNKNOWN INDICATION
  3. RITALIN [Suspect]
     Indication: PRODUCT USED FOR UNKNOWN INDICATION
  4. ACETAMINOPHEN [Suspect]
     Indication: PRODUCT USED FOR UNKNOWN INDICATION
  5. VICODIN [Suspect]
     Indication: PRODUCT USED FOR UNKNOWN INDICATION
  6. DIMETHYL SULFOXIDE [Suspect]
     Indication: PRODUCT USED FOR UNKNOWN INDICATION
     Route: 061
  7. NITROUS OXIDE [Suspect]
     Indication: PRODUCT USED FOR UNKNOWN INDICATION

REACTIONS (5)
  - SUICIDAL IDEATION [None]
  - CHOLANGITIS SCLEROSING [None]
  - SUBSTANCE ABUSE [None]
  - BILE DUCT CANCER [None]
  - DRUG ADMINISTRATION ERROR [None]
